FAERS Safety Report 4957691-6 (Version None)
Quarter: 2006Q1

REPORT INFORMATION
  Report Type: 
  Country: None (occurrence: None)
  Receive Date: 20060330
  Receipt Date: 20060320
  Transmission Date: 20060701
  Serious: Yes (Death)
  Sender: FDA-Public Use
  Company Number: DK-JNJFOC-20060305671

PATIENT
  Sex: Female

DRUGS (23)
  1. SPORANOX [Suspect]
     Route: 048
     Dates: start: 20060202
  2. MAGRYL [Concomitant]
     Dates: start: 20060222, end: 20060223
  3. MAGRYL [Concomitant]
     Dates: start: 20060222, end: 20060223
  4. ATACAND [Concomitant]
  5. AMLODIPINE [Concomitant]
     Dates: start: 20060222, end: 20060228
  6. NEXIUM [Concomitant]
     Dates: start: 20060222, end: 20060224
  7. UNIKALK [Concomitant]
     Dates: start: 20060222, end: 20060227
  8. UNIKALK [Concomitant]
     Dates: start: 20060222, end: 20060227
  9. UNIKALK [Concomitant]
     Dates: start: 20060222, end: 20060227
  10. AMARYL [Concomitant]
     Dates: start: 20060222, end: 20060227
  11. PREDNISOLONE [Concomitant]
     Dates: start: 20060222, end: 20060224
  12. FOSAMAX [Concomitant]
     Dates: start: 20060222, end: 20060227
  13. FURIX [Concomitant]
     Dates: start: 20060222, end: 20060223
  14. POTASSIUM CHLORIDE [Concomitant]
     Dates: start: 20060222, end: 20060222
  15. TELFAST [Concomitant]
     Dates: start: 20060222
  16. CIPRALEX [Concomitant]
     Dates: start: 20060222, end: 20060227
  17. CODEIN [Concomitant]
     Dates: start: 20060225
  18. PANTOPRAZOLE SODIUM [Concomitant]
     Route: 048
     Dates: start: 20060227
  19. KLEXANE [Concomitant]
     Dates: start: 20060221
  20. BETNOVAT [Concomitant]
     Dates: start: 20060225
  21. NEXIUM [Concomitant]
     Route: 042
     Dates: start: 20060223
  22. IMUREL [Concomitant]
     Dates: start: 20060222
  23. OMNIC [Concomitant]
     Dates: start: 20060222, end: 20060223

REACTIONS (4)
  - DERMATITIS ALLERGIC [None]
  - ERYTHEMA [None]
  - MULTI-ORGAN FAILURE [None]
  - SKIN OEDEMA [None]
